FAERS Safety Report 16741405 (Version 2)
Quarter: 2019Q3

REPORT INFORMATION
  Report Type: Report from Study
  Country: US (occurrence: US)
  Receive Date: 20190826
  Receipt Date: 20190826
  Transmission Date: 20191005
  Serious: No
  Sender: FDA-Public Use
  Company Number: PHEH2019US035103

PATIENT
  Sex: Male

DRUGS (5)
  1. PATANOL [Suspect]
     Active Substance: OLOPATADINE HYDROCHLORIDE
     Indication: PRODUCT USED FOR UNKNOWN INDICATION
     Route: 065
     Dates: start: 20140321, end: 20160216
  2. EPINASTINE. [Suspect]
     Active Substance: EPINASTINE HYDROCHLORIDE
     Indication: PRODUCT USED FOR UNKNOWN INDICATION
     Route: 065
     Dates: start: 20180517, end: 20190814
  3. KETOROLAC [Suspect]
     Active Substance: KETOROLAC TROMETHAMINE
     Indication: PRODUCT USED FOR UNKNOWN INDICATION
     Route: 065
     Dates: start: 20180516, end: 20190530
  4. AZELASTINE HYDROCHLORIDE. [Suspect]
     Active Substance: AZELASTINE HYDROCHLORIDE
     Route: 065
     Dates: start: 20140311, end: 20150616
  5. PATADAY [Suspect]
     Active Substance: OLOPATADINE HYDROCHLORIDE
     Indication: PRODUCT USED FOR UNKNOWN INDICATION
     Route: 065
     Dates: start: 20170629, end: 20171106

REACTIONS (1)
  - Drug ineffective [Unknown]
